FAERS Safety Report 23447263 (Version 1)
Quarter: 2024Q1

REPORT INFORMATION
  Report Type: Spontaneous
  Country: CN (occurrence: None)
  Receive Date: 20240126
  Receipt Date: 20240126
  Transmission Date: 20240410
  Serious: Yes (Hospitalization, Other)
  Sender: FDA-Public Use
  Company Number: 2024A018425

PATIENT
  Age: 29583 Day
  Sex: Male
  Weight: 75 kg

DRUGS (1)
  1. DAPAGLIFLOZIN [Suspect]
     Active Substance: DAPAGLIFLOZIN
     Indication: Blood glucose abnormal
     Dosage: ONCE EVERY ONE DAY
     Route: 048
     Dates: start: 20231212, end: 20231215

REACTIONS (2)
  - Drug eruption [Not Recovered/Not Resolved]
  - Urethritis [Not Recovered/Not Resolved]

NARRATIVE: CASE EVENT DATE: 20231212
